FAERS Safety Report 24104920 (Version 1)
Quarter: 2024Q3

REPORT INFORMATION
  Report Type: Report from Study
  Country: RU (occurrence: None)
  Receive Date: 20240717
  Receipt Date: 20240717
  Transmission Date: 20241017
  Serious: Yes (Hospitalization)
  Sender: ASTRAZENECA
  Company Number: 2019SF45329

PATIENT
  Age: 57 Year
  Sex: Female
  Weight: 125 kg

DRUGS (4)
  1. DAPAGLIFLOZIN [Suspect]
     Active Substance: DAPAGLIFLOZIN
     Indication: Type 2 diabetes mellitus
     Route: 048
  2. GLYBURIDE [Concomitant]
     Active Substance: GLYBURIDE
  3. VILDAGLIPTIN [Concomitant]
     Active Substance: VILDAGLIPTIN
  4. BLOOD, BOVINE [Concomitant]
     Active Substance: BLOOD, BOVINE

REACTIONS (9)
  - Neoplasm [Not Recovered/Not Resolved]
  - Gastritis [Not Recovered/Not Resolved]
  - Diarrhoea [Unknown]
  - Body temperature increased [Unknown]
  - Gastrointestinal disorder [Not Recovered/Not Resolved]
  - Haemoglobin decreased [Not Recovered/Not Resolved]
  - Hepatomegaly [Not Recovered/Not Resolved]
  - Pancreatic enlargement [Not Recovered/Not Resolved]
  - Splenomegaly [Not Recovered/Not Resolved]
